FAERS Safety Report 21729093 (Version 2)
Quarter: 2024Q4

REPORT INFORMATION
  Report Type: Spontaneous
  Country: US (occurrence: US)
  Receive Date: 20221214
  Receipt Date: 20241126
  Transmission Date: 20250114
  Serious: No
  Sender: PFIZER
  Company Number: US-PFIZER INC-PV202200123911

PATIENT
  Age: 79 Year
  Sex: Female

DRUGS (1)
  1. VYNDAMAX [Suspect]
     Active Substance: TAFAMIDIS
     Indication: Restrictive cardiomyopathy
     Dosage: 61 MG, DAILY
     Route: 048

REACTIONS (1)
  - Nasopharyngitis [Unknown]
